FAERS Safety Report 5826398-5 (Version None)
Quarter: 2008Q3

REPORT INFORMATION
  Report Type: 
  Country: None (occurrence: None)
  Receive Date: 20080724
  Receipt Date: 20080708
  Transmission Date: 20090109
  Serious: Yes (Life-Threatening)
  Sender: FDA-Public Use
  Company Number: 8034641

PATIENT
  Age: 46 Year
  Sex: Male

DRUGS (3)
  1. KEPPRA [Suspect]
     Indication: CONVULSION
     Dosage: 3500 MG 1/D PO
     Route: 048
     Dates: start: 20060101, end: 20080301
  2. OMEOPRAZOLE [Suspect]
     Dosage: 20 MG 1/D PO
     Route: 048
     Dates: start: 20060101, end: 20060301
  3. TRILEPTAL [Suspect]
     Indication: CONVULSION
     Dosage: 2400 MG 1/D PO
     Route: 048
     Dates: start: 20060301

REACTIONS (1)
  - CHOLESTASIS [None]
